FAERS Safety Report 10697602 (Version 1)
Quarter: 2015Q1

REPORT INFORMATION
  Report Type: Spontaneous
  Country: RO (occurrence: None)
  Receive Date: 20150106
  Receipt Date: 20150106
  Transmission Date: 20150721
  Serious: Yes (Other)
  Sender: FDA-Public Use
  Company Number: RO-ALKEM-000802

PATIENT
  Age: 31 Year
  Sex: Female

DRUGS (1)
  1. LAMOTRIGINE (LAMOTRIGINE) [Suspect]
     Active Substance: LAMOTRIGINE
     Indication: DEPRESSION

REACTIONS (3)
  - Jaundice [None]
  - Sepsis [None]
  - Drug reaction with eosinophilia and systemic symptoms [None]
